FAERS Safety Report 16908610 (Version 2)
Quarter: 2019Q4

REPORT INFORMATION
  Report Type: Spontaneous
  Country: US (occurrence: US)
  Receive Date: 20191011
  Receipt Date: 20191029
  Transmission Date: 20200122
  Serious: Yes (Other)
  Sender: FDA-Public Use
  Company Number: US-PARI RESPIRATORY EQUIPMENT, INC.-2019PAR00101

PATIENT
  Sex: Male
  Weight: 31.29 kg

DRUGS (18)
  1. ATROVENT [Concomitant]
     Active Substance: IPRATROPIUM BROMIDE
  2. SINGULAIR [Concomitant]
     Active Substance: MONTELUKAST SODIUM
  3. ALBUTEROL. [Concomitant]
     Active Substance: ALBUTEROL
  4. SODIUM CHLORIDE. [Concomitant]
     Active Substance: SODIUM CHLORIDE
  5. DUONEB [Concomitant]
     Active Substance: ALBUTEROL SULFATE\IPRATROPIUM BROMIDE
  6. SODIUM CHLORIDE. [Concomitant]
     Active Substance: SODIUM CHLORIDE
  7. PULMOZYME [Concomitant]
     Active Substance: DORNASE ALFA
  8. IPRATROPIUM [Concomitant]
     Active Substance: IPRATROPIUM
  9. KITABIS PAK [Suspect]
     Active Substance: TOBRAMYCIN
     Indication: CYSTIC FIBROSIS
     Dosage: 5 ML, 2X/DAY (EVERY 12 HOURS)
  10. SYMDEKO [Concomitant]
     Active Substance: IVACAFTOR\TEZACAFTOR
  11. MIRALAX [Concomitant]
     Active Substance: POLYETHYLENE GLYCOL 3350
  12. CREON [Concomitant]
     Active Substance: PANCRELIPASE AMYLASE\PANCRELIPASE LIPASE\PANCRELIPASE PROTEASE
  13. CAYSTON [Concomitant]
     Active Substance: AZTREONAM
  14. ORKAMBI [Concomitant]
     Active Substance: IVACAFTOR\LUMACAFTOR
  15. CYPROHEPTADINE. [Concomitant]
     Active Substance: CYPROHEPTADINE
  16. FLOVENT HFA [Concomitant]
     Active Substance: FLUTICASONE PROPIONATE
  17. BABY VITAMINS DROP [Concomitant]
  18. PREVACID [Concomitant]
     Active Substance: LANSOPRAZOLE

REACTIONS (1)
  - Pseudomonas infection [Unknown]
